FAERS Safety Report 4474072-2 (Version None)
Quarter: 2004Q4

REPORT INFORMATION
  Report Type: 
  Country: None (occurrence: None)
  Receive Date: 20041008
  Receipt Date: 20040921
  Transmission Date: 20050328
  Serious: Yes (Other)
  Sender: FDA-Public Use
  Company Number: USA040875238

PATIENT
  Age: 4 Year
  Sex: Male
  Weight: 15 kg

DRUGS (2)
  1. STRATTERA [Suspect]
     Indication: ATTENTION DEFICIT/HYPERACTIVITY DISORDER
     Dosage: 25 MG DAY
     Dates: start: 20040601
  2. FOCALIN [Concomitant]

REACTIONS (6)
  - COMPLEX PARTIAL SEIZURES [None]
  - CYANOSIS [None]
  - FAECAL INCONTINENCE [None]
  - MYDRIASIS [None]
  - URINARY INCONTINENCE [None]
  - VOMITING [None]
